FAERS Safety Report 11453431 (Version 7)
Quarter: 2016Q1

REPORT INFORMATION
  Report Type: Report from Study
  Country: IT (occurrence: IT)
  Receive Date: 20150903
  Receipt Date: 20160314
  Transmission Date: 20160525
  Serious: Yes (Hospitalization, Other)
  Sender: FDA-Public Use
  Company Number: PHHY2015IT104344

PATIENT
  Age: 45 Year
  Sex: Male
  Weight: 80 kg

DRUGS (2)
  1. TASIGNA [Suspect]
     Active Substance: NILOTINIB
     Indication: CHRONIC MYELOID LEUKAEMIA
     Dosage: 600 MG, QD
     Route: 048
     Dates: start: 20101104, end: 20150824
  2. CARDIOASPIRIN [Concomitant]
     Active Substance: ASPIRIN
     Indication: ANTICOAGULANT THERAPY
     Dosage: 100 MG, QD
     Route: 065
     Dates: start: 20130720

REACTIONS (12)
  - Dyspnoea [Unknown]
  - Arterial injury [Unknown]
  - Chest discomfort [Unknown]
  - Chest pain [Recovered/Resolved with Sequelae]
  - Musculoskeletal pain [Unknown]
  - Ischaemia [Unknown]
  - Troponin increased [Unknown]
  - Angina pectoris [Recovered/Resolved with Sequelae]
  - Pain in jaw [Unknown]
  - Coronary artery disease [Unknown]
  - Troponin I increased [Unknown]
  - Blood cholesterol increased [Unknown]

NARRATIVE: CASE EVENT DATE: 20130628
